FAERS Safety Report 24841477 (Version 1)
Quarter: 2025Q1

REPORT INFORMATION
  Report Type: Spontaneous
  Country: US (occurrence: US)
  Receive Date: 20250114
  Receipt Date: 20250114
  Transmission Date: 20250409
  Serious: Yes (Other)
  Sender: PFIZER
  Company Number: US-PFIZER INC-PV202300138887

PATIENT
  Age: 77 Year
  Sex: Female
  Weight: 150.4 kg

DRUGS (2)
  1. TALZENNA [Suspect]
     Active Substance: TALAZOPARIB TOSYLATE
     Dosage: 0.5 MG, 1X/DAY (TAKE TWO CAPSULES (0.5 MG) PO ONCE DAILY)
     Route: 048
     Dates: start: 20230809
  2. TALZENNA [Suspect]
     Active Substance: TALAZOPARIB TOSYLATE
     Route: 048

REACTIONS (2)
  - Thrombocytopenia [Unknown]
  - Off label use [Unknown]
